FAERS Safety Report 6882495-7 (Version None)
Quarter: 2010Q3

REPORT INFORMATION
  Report Type: 
  Country: None (occurrence: None)
  Receive Date: 20100727
  Receipt Date: 20100720
  Transmission Date: 20110219
  Serious: Yes (Life-Threatening)
  Sender: FDA-Public Use
  Company Number: DK-ASTRAZENECA-2010SE34535

PATIENT
  Age: 36 Year
  Sex: Male
  Weight: 105 kg

DRUGS (9)
  1. PROPOFOL [Suspect]
     Indication: INDUCTION OF ANAESTHESIA
     Dosage: 200 MG
     Route: 042
  2. REMIFENTANIL [Suspect]
     Indication: INDUCTION OF ANAESTHESIA
     Dosage: 40 MICROGRAM
  3. SUXAMETHONIUM [Suspect]
     Indication: INDUCTION OF ANAESTHESIA
     Dosage: 150 MG
  4. TRENBOLONE [Concomitant]
     Dosage: EVERY OTHER DAY
  5. TESTOSTERONENANTAT [Concomitant]
     Dosage: EVERY OTHER DAY
  6. GROWTH HORMONE [Concomitant]
     Dosage: EVERY OTHER DAY
  7. INSULIN [Concomitant]
     Dosage: EVERY OTHER DAY
  8. HYDROCORTISONSUCCINATE [Concomitant]
     Indication: STEROID THERAPY
     Dosage: 100 MG
  9. LIDOCAINE W/ EPINEPHRINE [Concomitant]
     Dosage: 3 ML 20 MG AND 5 MICROGRAM/ML

REACTIONS (1)
  - CIRCULATORY COLLAPSE [None]
